FAERS Safety Report 10024144 (Version 1)
Quarter: 2014Q1

REPORT INFORMATION
  Report Type: Spontaneous
  Country: US (occurrence: US)
  Receive Date: 20140320
  Receipt Date: 20140320
  Transmission Date: 20141002
  Serious: No
  Sender: FDA-Public Use
  Company Number: US-PFIZER INC-2014073400

PATIENT
  Age: 66 Year
  Sex: Female

DRUGS (14)
  1. LYRICA [Suspect]
     Indication: PAIN
     Dosage: 75 MG, 2X/DAY
     Route: 048
  2. CITALOPRAM HYDROBROMIDE [Concomitant]
     Dosage: 20 MG, DAILY
     Route: 048
  3. SYNTHROID [Concomitant]
     Dosage: 0.1 MG, DAILY
  4. PROAIR HFA [Concomitant]
     Dosage: UNK (TWO PUFF PRN)
  5. CPAP [Concomitant]
     Dosage: UNK
  6. PLAVIX [Concomitant]
     Dosage: UNK
  7. LIDODERM EXTERNAL PATCH [Concomitant]
     Dosage: UNK (APPLY 1-2 PATCHES TO AFFECTED AREA, ON 12 HR, OFF 12 HR)
  8. RANITIDINE HYDROCHLORIDE [Concomitant]
     Dosage: 150 MG, UNK
     Route: 048
  9. OMEPRAZOLE [Concomitant]
     Dosage: 40 MG, UNK
  10. SIMVASTATIN [Concomitant]
     Dosage: 40 MG, DAILY
  11. ASPIRIN [Concomitant]
     Dosage: 81 MG, 1X/DAY
  12. LEVOTHYROXINE [Concomitant]
     Dosage: 100 MG, DAILY
  13. TRAZODONE HYDROCHLORIDE [Concomitant]
     Dosage: 50 MG, 1X/DAY (1 PO QHS)
     Route: 048
  14. PERCOCET [Concomitant]
     Indication: PAIN
     Dosage: UNK (10-325 MG, TAKE 1 PO QID PRN)
     Route: 048

REACTIONS (10)
  - Arthritis [Unknown]
  - Sleep disorder [Unknown]
  - Paraesthesia [Unknown]
  - Back pain [Unknown]
  - Balance disorder [Unknown]
  - Hypoaesthesia [Unknown]
  - Gait disturbance [Unknown]
  - Dizziness [Unknown]
  - Depression [Unknown]
  - Anxiety [Unknown]
